FAERS Safety Report 5902758-9 (Version None)
Quarter: 2008Q4

REPORT INFORMATION
  Report Type: 
  Country: None (occurrence: None)
  Receive Date: 20080929
  Receipt Date: 20080929
  Transmission Date: 20090506
  Serious: Yes (Other)
  Sender: FDA-Public Use
  Company Number: None

PATIENT
  Age: 53 Year
  Sex: Male
  Weight: 124.7392 kg

DRUGS (2)
  1. XOPENEX HFA [Suspect]
     Indication: ASTHMA
     Dosage: 2 PUFFS BY MOUTH EVERY 4 HOURS PO
     Route: 048
     Dates: start: 20070101, end: 20080926
  2. XOPENEX HFA [Suspect]
     Indication: SEASONAL ALLERGY
     Dosage: 2 PUFFS BY MOUTH EVERY 4 HOURS PO
     Route: 048
     Dates: start: 20070101, end: 20080926

REACTIONS (2)
  - DRUG EFFECT DECREASED [None]
  - PRODUCT QUALITY ISSUE [None]
